FAERS Safety Report 20805090 (Version 1)
Quarter: 2022Q2

REPORT INFORMATION
  Report Type: Spontaneous
  Country: US (occurrence: US)
  Receive Date: 20220509
  Receipt Date: 20220509
  Transmission Date: 20220720
  Serious: Yes (Other)
  Sender: FDA-Public Use
  Company Number: US-BAUSCH-BL-2022-010874

PATIENT
  Age: 72 Year
  Sex: Female

DRUGS (3)
  1. MURO 128 [Suspect]
     Active Substance: SODIUM CHLORIDE
     Indication: Corneal dystrophy
     Dosage: 3 TO 4 TIMES DAILY
     Route: 047
     Dates: start: 202202, end: 2022
  2. MURO 128 [Suspect]
     Active Substance: SODIUM CHLORIDE
     Dosage: USING TWICE DAILY POST SURGERY
     Route: 047
     Dates: start: 2022, end: 2022
  3. MURO 128 [Suspect]
     Active Substance: SODIUM CHLORIDE
     Route: 047
     Dates: start: 202204

REACTIONS (9)
  - Eye operation [Unknown]
  - Instillation site pain [Unknown]
  - Instillation site foreign body sensation [Unknown]
  - Instillation site discomfort [Unknown]
  - Vision blurred [Unknown]
  - Rash [Unknown]
  - Condition aggravated [Unknown]
  - Erythema [Unknown]
  - Instillation site pruritus [Unknown]

NARRATIVE: CASE EVENT DATE: 20220101
